FAERS Safety Report 12003852 (Version 1)
Quarter: 2016Q1

REPORT INFORMATION
  Report Type: Spontaneous
  Country: FR (occurrence: FR)
  Receive Date: 20160204
  Receipt Date: 20160204
  Transmission Date: 20160526
  Serious: Yes (Disabling)
  Sender: FDA-Public Use
  Company Number: FR-ABBVIE-16P-056-1552823-00

PATIENT
  Sex: Female

DRUGS (1)
  1. DEPAKINE [Suspect]
     Active Substance: VALPROATE SODIUM
     Indication: MATERNAL EXPOSURE TIMING UNSPECIFIED
     Route: 064

REACTIONS (5)
  - Mental impairment [Unknown]
  - Foetal exposure during pregnancy [Unknown]
  - Cardiomyopathy [Unknown]
  - Foetal anticonvulsant syndrome [Unknown]
  - Dysmorphism [Unknown]

NARRATIVE: CASE EVENT DATE: 20151006
